FAERS Safety Report 6968340-X (Version None)
Quarter: 2010Q3

REPORT INFORMATION
  Report Type: 
  Country: None (occurrence: None)
  Receive Date: 20100907
  Receipt Date: 20100830
  Transmission Date: 20110219
  Serious: Yes (Death)
  Sender: FDA-Public Use
  Company Number: CN-ROCHE-723518

PATIENT
  Sex: Male
  Weight: 66 kg

DRUGS (3)
  1. BEVACIZUMAB [Suspect]
     Indication: GASTRIC CANCER
     Dosage: FREQUENCY: D1Q3W, DATE OF LAST DOSE PRIOR TO SAE: 3 JULY 2010, FORM: INFUSION
     Route: 042
     Dates: start: 20100428
  2. CAPECITABINE [Suspect]
     Indication: GASTRIC CANCER
     Dosage: FREQUENCY: D1-14Q3W BID
     Route: 048
     Dates: start: 20100428
  3. CISPLATIN [Suspect]
     Indication: GASTRIC CANCER
     Dosage: UNITS REPORTED: MG, FREQUENCY: D1Q3W, FORM: INFUSION. DATE OF LAST PRIOR TO SAE: 03 JULY 2010
     Route: 042
     Dates: start: 20100428

REACTIONS (1)
  - DEATH [None]
